FAERS Safety Report 22123275 (Version 1)
Quarter: 2023Q1

REPORT INFORMATION
  Report Type: Spontaneous
  Country: GB (occurrence: GB)
  Receive Date: 20230322
  Receipt Date: 20230322
  Transmission Date: 20230417
  Serious: Yes (Death, Life-Threatening, Hospitalization, Other)
  Sender: FDA-Public Use
  Company Number: GB-MYLANLABS-2018M1073364

PATIENT
  Age: 47 Year
  Sex: Female

DRUGS (33)
  1. AMLODIPINE [Suspect]
     Active Substance: AMLODIPINE BESYLATE
     Indication: Hypertension
     Route: 048
     Dates: start: 20180928, end: 20180928
  2. SERTRALINE [Suspect]
     Active Substance: SERTRALINE HYDROCHLORIDE
     Indication: Depression
     Dosage: 50 MILLIGRAM, QD, (50 MG, QD, AM)
     Route: 048
     Dates: start: 201709, end: 20180928
  3. LOSARTAN POTASSIUM [Suspect]
     Active Substance: LOSARTAN POTASSIUM
     Indication: Hypertension
     Dosage: 100 MG, QD
     Route: 048
     Dates: end: 20180928
  4. LOSARTAN POTASSIUM [Suspect]
     Active Substance: LOSARTAN POTASSIUM
     Indication: Schizophrenia
     Dosage: 200 MG, QD
     Route: 048
     Dates: start: 20170317, end: 20180928
  5. LOSARTAN POTASSIUM [Suspect]
     Active Substance: LOSARTAN POTASSIUM
     Route: 065
  6. CLOZAPINE [Suspect]
     Active Substance: CLOZAPINE
     Indication: Product used for unknown indication
     Route: 048
     Dates: start: 20170317, end: 20180928
  7. CLOZAPINE [Suspect]
     Active Substance: CLOZAPINE
     Dosage: PM
     Route: 048
     Dates: start: 20170317, end: 20180928
  8. CLOZARIL [Suspect]
     Active Substance: CLOZAPINE
     Indication: Schizophrenia
     Dosage: 200 MILLIGRAM, QD
     Route: 048
     Dates: start: 20170317, end: 20180928
  9. CLOZARIL [Suspect]
     Active Substance: CLOZAPINE
     Route: 048
     Dates: end: 20180928
  10. FELODIPINE [Suspect]
     Active Substance: FELODIPINE
     Indication: Hypertension
     Route: 048
     Dates: end: 20180928
  11. FELODIPINE [Suspect]
     Active Substance: FELODIPINE
     Route: 048
     Dates: end: 20180928
  12. FELODIPINE [Suspect]
     Active Substance: FELODIPINE
     Route: 048
     Dates: end: 20180928
  13. HUMALOG MIX50/50 [Suspect]
     Active Substance: INSULIN LISPRO
     Indication: Diabetes mellitus
     Route: 048
     Dates: end: 20180928
  14. HUMALOG MIX50/50 [Suspect]
     Active Substance: INSULIN LISPRO
     Route: 048
     Dates: end: 20180928
  15. HUMALOG MIX50/50 [Suspect]
     Active Substance: INSULIN LISPRO
     Route: 048
     Dates: end: 20180928
  16. HUMALOG MIX50/50 [Suspect]
     Active Substance: INSULIN LISPRO
     Route: 048
     Dates: end: 20180928
  17. HUMALOG MIX50/50 [Suspect]
     Active Substance: INSULIN LISPRO
     Route: 065
     Dates: end: 20180928
  18. HUMALOG MIX50/50 [Suspect]
     Active Substance: INSULIN LISPRO
     Route: 048
     Dates: end: 20180928
  19. HUMALOG MIX50/50 [Suspect]
     Active Substance: INSULIN LISPRO
     Dosage: 60 IU, TID
     Route: 048
     Dates: end: 20180928
  20. HUMALOG MIX50/50 [Suspect]
     Active Substance: INSULIN LISPRO
     Route: 048
     Dates: end: 20180928
  21. HUMALOG MIX50/50 [Suspect]
     Active Substance: INSULIN LISPRO
     Route: 048
  22. LANSOPRAZOLE [Suspect]
     Active Substance: LANSOPRAZOLE
     Indication: Gastrooesophageal reflux disease
     Dosage: 30 MG, AM, QD
     Route: 065
     Dates: end: 20180928
  23. LANSOPRAZOLE [Suspect]
     Active Substance: LANSOPRAZOLE
     Route: 065
     Dates: end: 20180928
  24. LANSOPRAZOLE [Suspect]
     Active Substance: LANSOPRAZOLE
     Route: 065
     Dates: end: 20180928
  25. PRAVASTATIN [Suspect]
     Active Substance: PRAVASTATIN
     Indication: Blood cholesterol increased
     Dosage: (QD PM)
     Route: 048
  26. PRAVASTATIN [Suspect]
     Active Substance: PRAVASTATIN
     Dosage: PM,
     Route: 048
  27. PRAVASTATIN [Suspect]
     Active Substance: PRAVASTATIN
     Route: 048
  28. PRAVASTATIN [Suspect]
     Active Substance: PRAVASTATIN
     Route: 048
  29. PRAVASTATIN [Suspect]
     Active Substance: PRAVASTATIN
     Route: 048
     Dates: start: 201709
  30. PRAVASTATIN SODIUM [Suspect]
     Active Substance: PRAVASTATIN SODIUM
     Indication: Blood cholesterol increased
     Dosage: 40 MG, QD, PM,
     Route: 048
  31. EZETIMIBE [Suspect]
     Active Substance: EZETIMIBE
     Indication: Blood cholesterol increased
     Route: 048
     Dates: end: 20180928
  32. EZETIMIBE [Suspect]
     Active Substance: EZETIMIBE
     Route: 048
     Dates: end: 20180928
  33. EZETIMIBE [Suspect]
     Active Substance: EZETIMIBE
     Route: 048
     Dates: end: 20180928

REACTIONS (8)
  - Pneumonia [Fatal]
  - Multiple organ dysfunction syndrome [Fatal]
  - Loss of consciousness [Fatal]
  - Incorrect route of product administration [Fatal]
  - Medication error [Fatal]
  - Intentional product misuse [Fatal]
  - Off label use [Fatal]
  - Overdose [Fatal]

NARRATIVE: CASE EVENT DATE: 20180101
